FAERS Safety Report 4389748-5 (Version None)
Quarter: 2004Q2

REPORT INFORMATION
  Report Type: 
  Country: None (occurrence: None)
  Receive Date: 20040624
  Receipt Date: 20040105
  Transmission Date: 20050107
  Serious: Yes (Hospitalization)
  Sender: FDA-Public Use
  Company Number: 2004UW00059

PATIENT
  Age: 17 Month
  Sex: Male

DRUGS (6)
  1. PULMICORT RESPULES [Suspect]
     Indication: ASTHMA
     Dosage: 0.5 MG QD IH
     Route: 055
  2. PULMICORT RESPULES [Suspect]
     Indication: ASTHMA
     Dosage: 0.5 MG BID IH
     Route: 055
     Dates: start: 20030901
  3. ATROVENT [Concomitant]
  4. ALBUTEROL [Concomitant]
  5. ORAPRED [Concomitant]
  6. ZOPINOX [Concomitant]

REACTIONS (3)
  - VARICELLA [None]
  - VIRAL INFECTION [None]
  - VIRAL UPPER RESPIRATORY TRACT INFECTION [None]
